FAERS Safety Report 7360254-9 (Version None)
Quarter: 2011Q1

REPORT INFORMATION
  Report Type: 
  Country: None (occurrence: None)
  Receive Date: 20110310
  Receipt Date: 20110223
  Transmission Date: 20110831
  Serious: Yes (Hospitalization)
  Sender: FDA-Public Use
  Company Number: 2009AC000308

PATIENT
  Age: 74 Year
  Sex: Female

DRUGS (48)
  1. ZOCOR [Concomitant]
  2. PREDNISONE [Concomitant]
  3. CATAPRES [Concomitant]
  4. ACETAMINOPHEN [Concomitant]
  5. LOVENOX [Concomitant]
  6. BACTRIM [Concomitant]
  7. VITAMIN B [Concomitant]
  8. CO-Q-10 [Concomitant]
  9. LASIX [Concomitant]
  10. PROTONIX [Concomitant]
  11. VERAPAMIL [Concomitant]
  12. GENTAMICIN [Concomitant]
  13. DIGOXIN [Suspect]
     Indication: PRODUCT USED FOR UNKNOWN INDICATION
     Dosage: .125 MG, QD, PO
     Route: 048
     Dates: start: 20030114, end: 20080501
  14. DIGOXIN [Suspect]
     Indication: PRODUCT USED FOR UNKNOWN INDICATION
     Dosage: 0.25 MG, QD, PO
     Route: 048
     Dates: start: 20030103, end: 20030114
  15. ZETIA [Concomitant]
  16. PLAVIX [Concomitant]
  17. PROTONIX [Concomitant]
  18. IPRATROPIUM BROMIDE [Concomitant]
  19. THERAGRAN M [Concomitant]
  20. SPIRIVA [Concomitant]
  21. ATROVENT [Concomitant]
  22. COUMADIN [Concomitant]
  23. LEVAQUIN [Concomitant]
  24. MUCINEX [Concomitant]
  25. VYTORIN [Concomitant]
  26. MUCOMYST [Concomitant]
  27. NYSTATIN [Concomitant]
  28. ALBUTEROL [Concomitant]
  29. LOVENOX [Concomitant]
  30. CALAN [Concomitant]
  31. XANAX [Concomitant]
  32. VERAPAMIL [Concomitant]
  33. HUMIBID [Concomitant]
  34. ATROVENT [Concomitant]
  35. ASPIRIN [Concomitant]
  36. POTASSIUM [Concomitant]
  37. IRON [Concomitant]
  38. LISINOPRIL [Concomitant]
  39. ALBUTEROL [Concomitant]
  40. CALCIUM [Concomitant]
  41. INSULIN [Concomitant]
  42. PRINIVIL [Concomitant]
  43. ADVAIR DISKUS 100/50 [Concomitant]
  44. VANCOMYCIN [Concomitant]
  45. VICODIN [Concomitant]
  46. PEPCID [Concomitant]
  47. MEDROL [Concomitant]
  48. AMARYL [Concomitant]

REACTIONS (46)
  - FAMILY STRESS [None]
  - ECONOMIC PROBLEM [None]
  - PANCREATITIS [None]
  - CORONARY ARTERY DISEASE [None]
  - CARDIAC FAILURE CONGESTIVE [None]
  - CONDITION AGGRAVATED [None]
  - BLOOD CHOLESTEROL INCREASED [None]
  - ALBUMIN URINE PRESENT [None]
  - RENAL FAILURE [None]
  - FATIGUE [None]
  - CARDIOMYOPATHY [None]
  - HYPOVITAMINOSIS [None]
  - HYPERTENSION [None]
  - LOSS OF CONSCIOUSNESS [None]
  - REFUSAL OF TREATMENT BY PATIENT [None]
  - CHRONIC OBSTRUCTIVE PULMONARY DISEASE [None]
  - HYPERHIDROSIS [None]
  - ANAEMIA [None]
  - PNEUMONIA [None]
  - RENAL ARTERY STENOSIS [None]
  - VENTRICULAR TACHYCARDIA [None]
  - OVERDOSE [None]
  - MULTIPLE INJURIES [None]
  - CHEST PAIN [None]
  - BRADYARRHYTHMIA [None]
  - DEPRESSION [None]
  - CARDIAC MURMUR [None]
  - PULMONARY VALVE INCOMPETENCE [None]
  - MITRAL VALVE INCOMPETENCE [None]
  - SUPRAVENTRICULAR TACHYCARDIA [None]
  - CARDIOMEGALY [None]
  - DIABETES MELLITUS [None]
  - SICK SINUS SYNDROME [None]
  - PLEURAL EFFUSION [None]
  - UNEVALUABLE EVENT [None]
  - CHOLELITHIASIS [None]
  - SYNCOPE [None]
  - TOXICITY TO VARIOUS AGENTS [None]
  - CHILLS [None]
  - HYPERDYNAMIC LEFT VENTRICLE [None]
  - SINUS ARREST [None]
  - INTRA-ABDOMINAL HAEMATOMA [None]
  - ATRIAL FIBRILLATION [None]
  - MYOCARDIAL ISCHAEMIA [None]
  - DIARRHOEA [None]
  - CORONARY ARTERY STENOSIS [None]
